FAERS Safety Report 10462125 (Version 2)
Quarter: 2014Q3

REPORT INFORMATION
  Report Type: Spontaneous
  Country: US (occurrence: US)
  Receive Date: 20140918
  Receipt Date: 20140918
  Transmission Date: 20150326
  Serious: Yes (Hospitalization)
  Sender: FDA-Public Use
  Company Number: US-GLAXOSMITHKLINE-A0733677A

PATIENT
  Sex: Male
  Weight: 200 kg

DRUGS (1)
  1. AVANDIA [Suspect]
     Active Substance: ROSIGLITAZONE MALEATE
     Indication: TYPE 2 DIABETES MELLITUS
     Dosage: 4MG TWICE PER DAY
     Route: 048
     Dates: start: 200103, end: 200809

REACTIONS (10)
  - Fluid retention [Unknown]
  - Hypertension [Unknown]
  - Myocardial infarction [Unknown]
  - Angina pectoris [Unknown]
  - Fatigue [Unknown]
  - Pleural effusion [Unknown]
  - Coronary artery disease [Unknown]
  - Cardiac failure congestive [Unknown]
  - Oedema peripheral [Unknown]
  - Ill-defined disorder [Unknown]
